FAERS Safety Report 24788098 (Version 1)
Quarter: 2024Q4

REPORT INFORMATION
  Report Type: Spontaneous
  Country: CH (occurrence: None)
  Receive Date: 20241230
  Receipt Date: 20241230
  Transmission Date: 20250115
  Serious: Yes (Other)
  Sender: INFORLIFE
  Company Number: CH-INFO-20240390

PATIENT
  Age: 60 Year

DRUGS (2)
  1. ACETAMINOPHEN [Interacting]
     Active Substance: ACETAMINOPHEN
     Dosage: WEEKS OF TREATMENT ()
  2. FLUCLOXACILLIN [Interacting]
     Active Substance: FLUCLOXACILLIN
     Dosage: WEEKS OF TREATMENT ()

REACTIONS (2)
  - Metabolic acidosis [Recovered/Resolved]
  - Drug interaction [Recovered/Resolved]
